FAERS Safety Report 25950814 (Version 1)
Quarter: 2025Q4

REPORT INFORMATION
  Report Type: Spontaneous
  Country: NZ (occurrence: NZ)
  Receive Date: 20251023
  Receipt Date: 20251023
  Transmission Date: 20260117
  Serious: Yes (Other)
  Sender: ROCHE
  Company Number: NZ-ROCHE-3172455

PATIENT
  Age: 67 Year
  Sex: Female
  Weight: 110 kg

DRUGS (9)
  1. TECENTRIQ [Suspect]
     Active Substance: ATEZOLIZUMAB
     Indication: Endometrial adenocarcinoma
     Route: 042
     Dates: start: 20220421, end: 20250627
  2. TECENTRIQ [Suspect]
     Active Substance: ATEZOLIZUMAB
     Indication: Endometrial cancer
  3. CELECOXIB [Concomitant]
     Active Substance: CELECOXIB
     Indication: Pain
     Route: 048
     Dates: start: 2021
  4. LORATADINE [Concomitant]
     Active Substance: LORATADINE
     Indication: Hypersensitivity
     Route: 048
     Dates: start: 20240625
  5. ASPIRIN [Concomitant]
     Active Substance: ASPIRIN
     Route: 048
     Dates: start: 2021, end: 202407
  6. ACETAMINOPHEN [Concomitant]
     Active Substance: ACETAMINOPHEN
     Indication: Pain
     Route: 048
     Dates: start: 2021
  7. ACETAMINOPHEN [Concomitant]
     Active Substance: ACETAMINOPHEN
     Route: 048
     Dates: start: 2021
  8. CEVREDOL [Concomitant]
     Indication: Pain
     Route: 048
     Dates: start: 2023
  9. CEVREDOL [Concomitant]
     Route: 048
     Dates: start: 2023

REACTIONS (3)
  - Off label use [Unknown]
  - Pneumonitis [Unknown]
  - Pneumonitis [Recovering/Resolving]

NARRATIVE: CASE EVENT DATE: 20250616
